FAERS Safety Report 7304732-7 (Version None)
Quarter: 2011Q1

REPORT INFORMATION
  Report Type: 
  Country: None (occurrence: None)
  Receive Date: 20110222
  Receipt Date: 20110216
  Transmission Date: 20110831
  Serious: Yes (Other)
  Sender: FDA-Public Use
  Company Number: US-PFIZER INC-2011034694

PATIENT

DRUGS (1)
  1. ZYVOX [Suspect]

REACTIONS (1)
  - BONE MARROW FAILURE [None]
